FAERS Safety Report 25370964 (Version 1)
Quarter: 2025Q2

REPORT INFORMATION
  Report Type: Spontaneous
  Country: US (occurrence: US)
  Receive Date: 20250528
  Receipt Date: 20250528
  Transmission Date: 20250716
  Serious: No
  Sender: ABBVIE
  Company Number: US-ABBVIE-6296713

PATIENT
  Sex: Female

DRUGS (3)
  1. VIIBRYD [Suspect]
     Active Substance: VILAZODONE HYDROCHLORIDE
     Indication: Major depression
     Route: 048
     Dates: start: 1981
  2. TITANIUM DIOXIDE [Suspect]
     Active Substance: TITANIUM DIOXIDE
     Indication: Product used for unknown indication
     Route: 065
  3. COBALTOUS CHLORIDE [Suspect]
     Active Substance: COBALTOUS CHLORIDE
     Indication: Product used for unknown indication
     Route: 065

REACTIONS (2)
  - Allergy to metals [Unknown]
  - Allergy to chemicals [Unknown]
